FAERS Safety Report 4757409-6 (Version None)
Quarter: 2005Q3

REPORT INFORMATION
  Report Type: 
  Country: None (occurrence: None)
  Receive Date: 20050829
  Receipt Date: 20050819
  Transmission Date: 20060218
  Serious: Yes (Other)
  Sender: FDA-Public Use
  Company Number: 8011420

PATIENT
  Sex: Male

DRUGS (2)
  1. KEPPRA [Suspect]
     Indication: CONVULSION
     Dosage: 500 MG 2/D PO
     Route: 048
  2. KEPPRA [Suspect]
     Indication: CONVULSION
     Dosage: 1500 MG ONCE PO
     Route: 048
     Dates: start: 20050819, end: 20050818

REACTIONS (5)
  - AMNESIA [None]
  - ANXIETY [None]
  - DIZZINESS [None]
  - FEELING HOT [None]
  - INCORRECT DOSE ADMINISTERED [None]
